FAERS Safety Report 7844207-X (Version None)
Quarter: 2011Q4

REPORT INFORMATION
  Report Type: 
  Country: None (occurrence: None)
  Receive Date: 20111025
  Receipt Date: 20111011
  Transmission Date: 20120403
  Serious: Yes (Hospitalization)
  Sender: FDA-Public Use
  Company Number: HU-ELI_LILLY_AND_COMPANY-HU201110002513

PATIENT
  Age: 65 Year
  Sex: Female

DRUGS (3)
  1. CALCIUM CARBONATE [Concomitant]
  2. VITAMIN D [Concomitant]
  3. TERIPARATIDE [Suspect]
     Dosage: 20 UG, QD
     Route: 058
     Dates: start: 20110101

REACTIONS (1)
  - TIBIA FRACTURE [None]
